FAERS Safety Report 16170416 (Version 1)
Quarter: 2019Q2

REPORT INFORMATION
  Report Type: Spontaneous
  Country: GR (occurrence: GR)
  Receive Date: 20190408
  Receipt Date: 20190408
  Transmission Date: 20190711
  Serious: Yes (Life-Threatening, Hospitalization, Disabling, Other)
  Sender: FDA-Public Use
  Company Number: GR-MYLANLABS-2018M1025598

PATIENT
  Age: 79 Year
  Sex: Female

DRUGS (4)
  1. ATORVASTATIN [Suspect]
     Active Substance: ATORVASTATIN
     Indication: DYSLIPIDAEMIA
     Dosage: 20 MG,QD
  2. CLINDAMYCIN. [Concomitant]
     Active Substance: CLINDAMYCIN
     Indication: SKIN BACTERIAL INFECTION
     Dosage: 300 MG, Q3D, (900 MG QD)
  3. FUSIDIC ACID [Interacting]
     Active Substance: FUSIDIC ACID
     Indication: SKIN BACTERIAL INFECTION
     Dosage: 250 MG FOUR TIMES DAILY
  4. FUSIDIC ACID [Interacting]
     Active Substance: FUSIDIC ACID
     Dosage: 1000 MILLIGRAM, QD
     Route: 065

REACTIONS (6)
  - Rhabdomyolysis [Recovered/Resolved]
  - Myoglobinuria [Recovered/Resolved]
  - Gait disturbance [Recovered/Resolved]
  - Labelled drug-drug interaction medication error [Recovered/Resolved]
  - Myalgia [Recovered/Resolved]
  - Muscular weakness [Recovered/Resolved]

NARRATIVE: CASE EVENT DATE: 20160921
